FAERS Safety Report 15429523 (Version 2)
Quarter: 2018Q4

REPORT INFORMATION
  Report Type: Spontaneous
  Country: DE (occurrence: DE)
  Receive Date: 20180926
  Receipt Date: 20181008
  Transmission Date: 20190204
  Serious: Yes (Death, Other)
  Sender: FDA-Public Use
  Company Number: DE-SA-2018SA264298

PATIENT
  Age: 78 Year
  Sex: Female
  Weight: 75 kg

DRUGS (14)
  1. NICORANDIL [Suspect]
     Active Substance: NICORANDIL
     Indication: ANGINA PECTORIS
     Dosage: 240 MG
     Route: 048
  2. ZOLPIDEM TARTRATE. [Suspect]
     Active Substance: ZOLPIDEM TARTRATE
     Indication: DEPRESSIVE SYMPTOM
     Dosage: UNKNOWN
     Route: 048
     Dates: start: 20130330, end: 201304
  3. FAMOTIDINE. [Suspect]
     Active Substance: FAMOTIDINE
     Indication: PRODUCT USED FOR UNKNOWN INDICATION
     Dosage: DAILY DOSE: 200 MG MILLIGRAM(S) EVERY DAY
     Route: 048
     Dates: start: 20130422, end: 20130422
  4. ETIZOLAM [Concomitant]
     Active Substance: ETIZOLAM
     Indication: PRODUCT USED FOR UNKNOWN INDICATION
     Route: 048
     Dates: start: 20130330
  5. TOREM [TORASEMIDE] [Concomitant]
     Indication: CARDIAC FAILURE
     Route: 048
     Dates: start: 20141010, end: 20141111
  6. DELIX [RAMIPRIL] [Concomitant]
     Indication: CARDIAC FAILURE
     Route: 048
     Dates: start: 20141009, end: 20141111
  7. SEROQUEL [Concomitant]
     Active Substance: QUETIAPINE FUMARATE
     Indication: CONDUCT DISORDER
     Route: 048
     Dates: start: 20141009, end: 20141021
  8. OLANZAPINE. [Suspect]
     Active Substance: OLANZAPINE
     Indication: DEPRESSIVE SYMPTOM
     Dosage: UNKNOWN
     Route: 048
     Dates: start: 20130330
  9. CONIEL [Suspect]
     Active Substance: BENIDIPINE HYDROCHLORIDE
     Indication: HYPERTENSION
     Route: 048
  10. ATORVASTATIN [Suspect]
     Active Substance: ATORVASTATIN
     Indication: HYPERLIPIDAEMIA
     Route: 048
  11. ELIQUIS [Suspect]
     Active Substance: APIXABAN
     Indication: CEREBROVASCULAR ACCIDENT PROPHYLAXIS
     Dosage: 2.5 MG, UNK
     Route: 048
     Dates: start: 20141021, end: 20141023
  12. DULOXETINE HYDROCHLORIDE. [Suspect]
     Active Substance: DULOXETINE HYDROCHLORIDE
     Indication: DEPRESSIVE SYMPTOM
     Dosage: 560 MG, UNK
     Route: 048
     Dates: start: 20130330
  13. VALPROATE SODIUM. [Suspect]
     Active Substance: VALPROATE SODIUM
     Indication: PRODUCT USED FOR UNKNOWN INDICATION
     Dosage: DAILY DOSE: 5600 MG MILLIGRAM(S) EVERY DAY
     Route: 048
     Dates: start: 20130422, end: 20130422
  14. ESOMEPRAZOLE. [Concomitant]
     Active Substance: ESOMEPRAZOLE MAGNESIUM
     Indication: GASTRITIS
     Route: 048
     Dates: start: 20141016, end: 20141111

REACTIONS (5)
  - Pneumonia [Fatal]
  - Intentional overdose [Unknown]
  - Toxicity to various agents [Fatal]
  - Off label use [Unknown]
  - Status epilepticus [Fatal]

NARRATIVE: CASE EVENT DATE: 20130422
